FAERS Safety Report 8833771 (Version 1)
Quarter: 2012Q4

REPORT INFORMATION
  Report Type: Report from Study
  Country: BR (occurrence: BR)
  Receive Date: 20121010
  Receipt Date: 20121010
  Transmission Date: 20130627
  Serious: Yes (Hospitalization, Other)
  Sender: FDA-Public Use
  Company Number: BR-PFIZER INC-2012249106

PATIENT
  Age: 88 Year
  Sex: Female

DRUGS (11)
  1. LIPITOR [Suspect]
     Indication: BLOOD CHOLESTEROL
     Dosage: 10 mg, 1x/day
     Route: 048
     Dates: start: 20120227
  2. ASPIRINA PREVENT [Concomitant]
     Indication: ANTICOAGULANT THERAPY
     Dosage: 100 mg, 1x/day
     Dates: start: 201209
  3. LACTULONA [Concomitant]
     Indication: ABDOMINAL DISCOMFORT
     Dosage: three times daily
     Dates: start: 201209
  4. PROFOL [Concomitant]
     Dosage: two tablets of 25 mg daily
     Dates: start: 201209
  5. SEROQUEL [Concomitant]
     Dosage: 12.5 mg (haf tablet of 25mg), 1x/day
     Dates: start: 201209
  6. CALTRATE WITH VITAMIN D [Concomitant]
     Dosage: 3 tablets daily
  7. DAFLON 500 [Concomitant]
     Indication: VARICOSE VEIN
     Dosage: two tablets daily
  8. DOMPERIDONE [Concomitant]
     Dosage: 3 tablets of 10mg daily, unspecified frequency
     Dates: start: 2009
  9. PANTOZOL [Concomitant]
     Indication: SENSATION OF PRESSURE
     Dosage: 20 mg, 1x/day in fasting
  10. PROTOS [Concomitant]
     Dosage: one sachet at night
  11. SOTACOR [Concomitant]
     Dosage: 60 mg (half tablet of 120mg), 1x/day

REACTIONS (1)
  - Transient ischaemic attack [Unknown]
